FAERS Safety Report 9553694 (Version 6)
Quarter: 2014Q1

REPORT INFORMATION
  Report Type: Report from Study
  Country: JP (occurrence: JP)
  Receive Date: 20130925
  Receipt Date: 20140211
  Transmission Date: 20141002
  Serious: Yes (Hospitalization)
  Sender: FDA-Public Use
  Company Number: JP-GLAXOSMITHKLINE-B0841852B

PATIENT
  Age: 30 Year
  Sex: Male
  Weight: 61 kg

DRUGS (10)
  1. GSK1550188 [Suspect]
     Indication: SYSTEMIC LUPUS ERYTHEMATOSUS
     Dosage: 10MGK PER DAY
     Route: 042
     Dates: start: 20121019, end: 20130827
  2. PREDNISOLONE [Concomitant]
     Indication: SYSTEMIC LUPUS ERYTHEMATOSUS
     Dosage: 9MG PER DAY
     Route: 048
     Dates: start: 20130731, end: 20131023
  3. TACROLIMUS HYDRATE [Concomitant]
     Indication: SYSTEMIC LUPUS ERYTHEMATOSUS
     Dosage: 3MG PER DAY
     Route: 048
     Dates: start: 20130927, end: 20131016
  4. CEFEPIME DIHYDROCHLORIDE HYDRATE [Concomitant]
     Indication: PLEURISY
     Dosage: 1G TWICE PER DAY
     Route: 042
     Dates: start: 20130920, end: 20130925
  5. CEFEPIME DIHYDROCHLORIDE HYDRATE [Concomitant]
     Indication: PLEURISY
     Dosage: 1G PER DAY
     Route: 042
     Dates: start: 20131003, end: 20131004
  6. CEFEPIME DIHYDROCHLORIDE HYDRATE [Concomitant]
     Indication: PLEURISY
     Dosage: 1G PER DAY
     Route: 042
     Dates: start: 20131015, end: 20131016
  7. CEFEPIME DIHYDROCHLORIDE HYDRATE [Concomitant]
     Indication: PLEURISY
     Dosage: 1G TWICE PER DAY
     Route: 042
     Dates: start: 20131017, end: 20131017
  8. CEFEPIME DIHYDROCHLORIDE HYDRATE [Concomitant]
     Indication: PLEURISY
     Dosage: 1G THREE TIMES PER DAY
     Route: 042
     Dates: start: 20131018, end: 20131023
  9. CEFDITOREN PIVOXIL [Concomitant]
     Indication: PLEURISY
     Dosage: 100MG THREE TIMES PER DAY
     Route: 048
     Dates: start: 20131003, end: 20131014
  10. CEFDITOREN PIVOXIL [Concomitant]
     Indication: PLEURISY
     Dosage: 200MG THREE TIMES PER DAY
     Route: 048
     Dates: start: 20131015

REACTIONS (2)
  - Pleurisy [Recovered/Resolved]
  - Pericarditis lupus [Recovered/Resolved]
